FAERS Safety Report 20065771 (Version 3)
Quarter: 2022Q1

REPORT INFORMATION
  Report Type: Spontaneous
  Country: US (occurrence: US)
  Receive Date: 20211113
  Receipt Date: 20220219
  Transmission Date: 20220423
  Serious: No
  Sender: FDA-Public Use
  Company Number: US-JNJFOC-20211058722

PATIENT
  Age: 25 Year
  Sex: Male
  Weight: 79.450 kg

DRUGS (2)
  1. TREMFYA [Suspect]
     Active Substance: GUSELKUMAB
     Indication: Psoriasis
     Dosage: 100.00 MG/ML
     Route: 065
     Dates: start: 20210929
  2. TREMFYA [Suspect]
     Active Substance: GUSELKUMAB

REACTIONS (2)
  - Needle issue [Unknown]
  - Product dose omission issue [Unknown]
